FAERS Safety Report 9705100 (Version 5)
Quarter: 2014Q1

REPORT INFORMATION
  Report Type: Spontaneous
  Country: US (occurrence: US)
  Receive Date: 20131122
  Receipt Date: 20140210
  Transmission Date: 20141002
  Serious: Yes (Hospitalization, Other)
  Sender: FDA-Public Use
  Company Number: US-009507513-1311USA008250

PATIENT
  Sex: Female

DRUGS (25)
  1. SAPHRIS [Suspect]
     Indication: POST-TRAUMATIC STRESS DISORDER
     Dosage: 20 MG, HS, RAPID DISSOLVE 10
     Route: 060
     Dates: start: 2011
  2. RESTASIS [Concomitant]
     Dosage: UNK
  3. NYSTATIN [Concomitant]
     Dosage: UNK
  4. CYMBALTA [Concomitant]
     Dosage: UNK
  5. PRILOSEC [Concomitant]
     Dosage: UNK
  6. BUSPIRONE HYDROCHLORIDE [Concomitant]
     Dosage: UNK
  7. POTASSIUM (UNSPECIFIED) [Concomitant]
     Dosage: UNK
  8. METFORMIN [Concomitant]
     Dosage: UNK
  9. PREMARIN [Concomitant]
     Dosage: UNK
  10. DICYCLOMINE HYDROCHLORIDE [Concomitant]
     Dosage: UNK
  11. XYZAL [Concomitant]
     Dosage: UNK
  12. PRINIVIL [Concomitant]
     Dosage: UNK
  13. ZOLOFT [Concomitant]
     Dosage: UNK
  14. SINGULAIR [Concomitant]
     Dosage: UNK
  15. LYRICA [Concomitant]
     Dosage: UNK
  16. MECLIZINE [Concomitant]
     Dosage: UNK
  17. FUROSEMIDE [Concomitant]
     Dosage: UNK
  18. PROVIGIL [Concomitant]
     Dosage: UNK
  19. GLIPIZIDE [Concomitant]
     Dosage: UNK
  20. ADVAIR [Concomitant]
     Dosage: UNK
  21. VITAMIN D (UNSPECIFIED) [Concomitant]
     Dosage: UNK
  22. STRATTERA [Concomitant]
     Dosage: UNK
  23. VISTARIL [Concomitant]
     Dosage: UNK
  24. PRAVASTATIN SODIUM [Concomitant]
     Dosage: UNK
  25. NEURONTIN [Concomitant]
     Dosage: UNK

REACTIONS (7)
  - Oesophageal rupture [Recovered/Resolved]
  - Surgery [Recovered/Resolved]
  - Drug administration error [Unknown]
  - Product blister packaging issue [Unknown]
  - Aphagia [Recovered/Resolved]
  - Inappropriate schedule of drug administration [Unknown]
  - Gastrointestinal tube insertion [Recovered/Resolved]
